FAERS Safety Report 18256569 (Version 1)
Quarter: 2020Q3

REPORT INFORMATION
  Report Type: Spontaneous
  Country: US (occurrence: US)
  Receive Date: 20200911
  Receipt Date: 20200911
  Transmission Date: 20201103
  Serious: Yes (Life-Threatening, Hospitalization, Other)
  Sender: FDA-Public Use
  Company Number: US-LUPIN PHARMACEUTICALS INC.-2020-05823

PATIENT
  Age: 47 Year
  Sex: Male

DRUGS (1)
  1. METFORMIN [Suspect]
     Active Substance: METFORMIN HYDROCHLORIDE
     Indication: PRODUCT USED FOR UNKNOWN INDICATION
     Dosage: 1000 MILLIGRAM, BID (90 G)
     Route: 048

REACTIONS (6)
  - Renal tubular necrosis [Unknown]
  - Lactic acidosis [Recovered/Resolved]
  - Overdose [Unknown]
  - Respiratory failure [Unknown]
  - Toxicity to various agents [Recovered/Resolved]
  - Shock [Recovered/Resolved]
